FAERS Safety Report 11624408 (Version 1)
Quarter: 2015Q4

REPORT INFORMATION
  Report Type: Spontaneous
  Country: GB (occurrence: GB)
  Receive Date: 20151013
  Receipt Date: 20151013
  Transmission Date: 20160304
  Serious: Yes (Hospitalization)
  Sender: FDA-Public Use
  Company Number: GB-AMGEN-GBRSP2015105296

PATIENT
  Sex: Male

DRUGS (1)
  1. ARANESP [Suspect]
     Active Substance: DARBEPOETIN ALFA
     Indication: PRODUCT USED FOR UNKNOWN INDICATION
     Dosage: 60 MUG/ 0.3 ML, UNK
     Route: 065

REACTIONS (4)
  - Muscle disorder [Unknown]
  - Localised infection [Unknown]
  - Feeling abnormal [Unknown]
  - Neoplasm [Unknown]

NARRATIVE: CASE EVENT DATE: 2015
